FAERS Safety Report 9758081 (Version 2)
Quarter: 2014Q1

REPORT INFORMATION
  Report Type: Spontaneous
  Country: US (occurrence: US)
  Receive Date: 20131216
  Receipt Date: 20140326
  Transmission Date: 20141002
  Serious: Yes (Hospitalization)
  Sender: FDA-Public Use
  Company Number: US-JNJFOC-20131204761

PATIENT
  Sex: Female
  Weight: 67.13 kg

DRUGS (3)
  1. STELARA [Suspect]
     Indication: PSORIASIS
     Route: 058
     Dates: start: 20130503, end: 20130530
  2. STELARA [Suspect]
     Indication: PSORIASIS
     Route: 058
     Dates: start: 20130829
  3. STELARA [Suspect]
     Indication: PSORIASIS
     Route: 058
     Dates: start: 2011

REACTIONS (2)
  - Hospitalisation [Recovered/Resolved]
  - Drug dose omission [Unknown]
